FAERS Safety Report 4951256-8 (Version None)
Quarter: 2006Q1

REPORT INFORMATION
  Report Type: 
  Country: None (occurrence: None)
  Receive Date: 20060317
  Receipt Date: 20060310
  Transmission Date: 20060701
  Serious: Yes (Hospitalization)
  Sender: FDA-Public Use
  Company Number: 2006RL000082

PATIENT
  Age: 23 Month
  Sex: Female
  Weight: 12 kg

DRUGS (1)
  1. PROPAFENONE HYDROCHLORIDE [Suspect]
     Dosage: 75 MG;X1;PO
     Route: 048
     Dates: start: 20060307, end: 20060307

REACTIONS (1)
  - ACCIDENTAL EXPOSURE [None]
